FAERS Safety Report 10967472 (Version 2)
Quarter: 2015Q2

REPORT INFORMATION
  Report Type: Spontaneous
  Country: CH (occurrence: CH)
  Receive Date: 20150330
  Receipt Date: 20150402
  Transmission Date: 20150821
  Serious: Yes (Other)
  Sender: FDA-Public Use
  Company Number: CH-PFIZER INC-2015106573

PATIENT
  Age: 63 Year
  Sex: Female

DRUGS (6)
  1. TEMESTA [Concomitant]
     Active Substance: LORAZEPAM
  2. FEMARA [Concomitant]
     Active Substance: LETROZOLE
  3. PROLIA [Concomitant]
     Active Substance: DENOSUMAB
  4. CONCOR [Concomitant]
     Active Substance: BISOPROLOL FUMARATE
  5. INDERAL [Suspect]
     Active Substance: PROPRANOLOL HYDROCHLORIDE
     Dosage: UNK
     Dates: start: 2008, end: 2013
  6. ZOCOR [Concomitant]
     Active Substance: SIMVASTATIN

REACTIONS (1)
  - Optic nerve injury [Unknown]
